FAERS Safety Report 9531635 (Version 1)
Quarter: 2013Q3

REPORT INFORMATION
  Report Type: Spontaneous
  Country: CN (occurrence: None)
  Receive Date: 20130916
  Receipt Date: 20130916
  Transmission Date: 20140515
  Serious: Yes (Hospitalization)
  Sender: FDA-Public Use
  Company Number: IPC201309-000354

PATIENT
  Age: 13 Year
  Sex: Female

DRUGS (1)
  1. ALLOPURINOL [Suspect]
     Indication: HYPERURICAEMIA

REACTIONS (6)
  - Drug reaction with eosinophilia and systemic symptoms [None]
  - Haemoglobin decreased [None]
  - Pelvic fluid collection [None]
  - Blood potassium increased [None]
  - Blood urea increased [None]
  - Liver injury [None]
